FAERS Safety Report 10948899 (Version 5)
Quarter: 2018Q3

REPORT INFORMATION
  Report Type: Spontaneous
  Country: US (occurrence: US)
  Receive Date: 20150324
  Receipt Date: 20180810
  Transmission Date: 20181010
  Serious: Yes (Hospitalization, Other)
  Sender: FDA-Public Use
  Company Number: US-PFIZER INC-2014142736

PATIENT
  Age: 37 Year
  Sex: Female
  Weight: 63.49 kg

DRUGS (4)
  1. LYRICA [Suspect]
     Active Substance: PREGABALIN
     Indication: SEIZURE
     Dosage: UNK
     Route: 042
     Dates: start: 20171010
  2. LYRICA [Suspect]
     Active Substance: PREGABALIN
     Indication: EPILEPSY
     Dosage: 150 MG, 3X/DAY
     Route: 048
  3. LYRICA [Suspect]
     Active Substance: PREGABALIN
     Indication: GENERALISED TONIC-CLONIC SEIZURE
  4. LYRICA [Suspect]
     Active Substance: PREGABALIN
     Indication: FIBROMYALGIA
     Dosage: 300 MG, 3X/DAY
     Route: 048
     Dates: start: 2010

REACTIONS (15)
  - Overdose [Unknown]
  - Pneumonia [Recovered/Resolved with Sequelae]
  - Seizure [Unknown]
  - Sepsis [Recovered/Resolved with Sequelae]
  - Coma [Recovered/Resolved with Sequelae]
  - Peripheral vascular disorder [Recovered/Resolved with Sequelae]
  - Scar [Not Recovered/Not Resolved]
  - Hypotension [Unknown]
  - Hyperpyrexia [Unknown]
  - Memory impairment [Unknown]
  - Pain [Unknown]
  - Gangrene [Recovered/Resolved with Sequelae]
  - Weight increased [Unknown]
  - Condition aggravated [Unknown]
  - Product use issue [Unknown]

NARRATIVE: CASE EVENT DATE: 2017
